FAERS Safety Report 7300862-4 (Version None)
Quarter: 2011Q1

REPORT INFORMATION
  Report Type: 
  Country: None (occurrence: None)
  Receive Date: 20110218
  Receipt Date: 20110214
  Transmission Date: 20110831
  Serious: Yes (Death, Hospitalization, Other)
  Sender: FDA-Public Use
  Company Number: PHHY2010US72825

PATIENT
  Sex: Female

DRUGS (1)
  1. EXJADE [Suspect]
     Indication: MYELOFIBROSIS
     Dosage: 1000 MG, QD
     Route: 048

REACTIONS (8)
  - SPLENOMEGALY [None]
  - PLATELET COUNT DECREASED [None]
  - CEREBROVASCULAR ACCIDENT [None]
  - PAIN [None]
  - FLATULENCE [None]
  - DEATH [None]
  - VOMITING [None]
  - DIARRHOEA [None]
